FAERS Safety Report 21283241 (Version 1)
Quarter: 2022Q3

REPORT INFORMATION
  Report Type: Spontaneous
  Country: US (occurrence: None)
  Receive Date: 20220901
  Receipt Date: 20220901
  Transmission Date: 20221027
  Serious: No
  Sender: FDA-Public Use
  Company Number: None

PATIENT

DRUGS (1)
  1. PROPRANOLOL HYDROCHLORIDE [Suspect]
     Active Substance: PROPRANOLOL HYDROCHLORIDE

REACTIONS (7)
  - Product dispensing error [None]
  - Pyrexia [None]
  - Pain [None]
  - Malaise [None]
  - Incorrect dose administered [None]
  - Product label issue [None]
  - Overdose [None]
